FAERS Safety Report 8129620-8 (Version None)
Quarter: 2012Q1

REPORT INFORMATION
  Report Type: 
  Country: None (occurrence: None)
  Receive Date: 20120210
  Receipt Date: 20120130
  Transmission Date: 20120608
  Serious: Yes (Other)
  Sender: FDA-Public Use
  Company Number: FR-VIIV HEALTHCARE LIMITED-B0778624A

PATIENT
  Sex: Male

DRUGS (1)
  1. ZIAGEN [Suspect]
     Indication: HIV INFECTION
     Route: 065

REACTIONS (2)
  - POLYMYALGIA RHEUMATICA [None]
  - MUSCULOSKELETAL PAIN [None]
